FAERS Safety Report 7882683-7 (Version None)
Quarter: 2011Q4

REPORT INFORMATION
  Report Type: 
  Country: None (occurrence: None)
  Receive Date: 20111101
  Receipt Date: 20110617
  Transmission Date: 20120403
  Serious: No
  Sender: FDA-Public Use
  Company Number: US-AMGEN-USASP2011031134

PATIENT
  Age: 9 Year
  Sex: Female
  Weight: 40 kg

DRUGS (2)
  1. ENBREL [Suspect]
     Indication: PRODUCT USED FOR UNKNOWN INDICATION
     Dosage: 25 MG, Q2WK
     Route: 058
  2. ENBREL [Suspect]
     Dosage: 50 MG, Q2WK
     Route: 058

REACTIONS (3)
  - SCAR [None]
  - SKIN STRIAE [None]
  - RASH MACULAR [None]
